FAERS Safety Report 4319476-3 (Version None)
Quarter: 2004Q1

REPORT INFORMATION
  Report Type: 
  Country: None (occurrence: None)
  Receive Date: 20040316
  Receipt Date: 20040304
  Transmission Date: 20041129
  Serious: Yes (Death)
  Sender: FDA-Public Use
  Company Number: US-JNJFOC-20030903928

PATIENT
  Age: 4 Year
  Sex: Female

DRUGS (1)
  1. DURAGESIC [Suspect]
     Indication: MEDICATION ERROR
     Dosage: TRANSDERMAL
     Route: 062

REACTIONS (5)
  - CARDIAC ARREST [None]
  - COMA [None]
  - CONVULSION [None]
  - FEELING COLD [None]
  - MEDICATION ERROR [None]
